FAERS Safety Report 4910353-3 (Version None)
Quarter: 2006Q1

REPORT INFORMATION
  Report Type: 
  Country: None (occurrence: None)
  Receive Date: 20060209
  Receipt Date: 20060131
  Transmission Date: 20060701
  Serious: Yes (Other)
  Sender: FDA-Public Use
  Company Number: 2006-BP-01244RO

PATIENT
  Age: 23 Year
  Sex: Female
  Weight: 93 kg

DRUGS (11)
  1. MIDAZOLAM HCL [Suspect]
     Indication: SEDATION
     Dosage: 4 MG LATER FOLLOWED BY 2 MG, IV
     Route: 042
  2. SODIUM OXYBATE (OXYBATE SODIUM) [Suspect]
     Indication: CATAPLEXY
  3. PROPOFOL [Suspect]
     Indication: ANAESTHESIA
     Dosage: 550 MG, IV
     Route: 042
  4. FENTANYL [Suspect]
     Indication: ANAESTHESIA
     Dosage: 100 MCG, IV
     Route: 042
  5. BUPROPION HCL [Concomitant]
  6. METRONIDAZOLE [Concomitant]
  7. MIDODRINE (MIDODRINE) [Concomitant]
  8. MODAFINIL [Concomitant]
  9. NADOLOL [Concomitant]
  10. PREDNISONE [Concomitant]
  11. ORAL CONTRACEPTIVES (CONTRACEPTIVES NOS) [Concomitant]

REACTIONS (5)
  - AGITATION [None]
  - AMNESIA [None]
  - CONFUSIONAL STATE [None]
  - DRUG INTERACTION [None]
  - POST PROCEDURAL COMPLICATION [None]
